FAERS Safety Report 16662892 (Version 1)
Quarter: 2019Q3

REPORT INFORMATION
  Report Type: Report from Study
  Country: US (occurrence: US)
  Receive Date: 20190802
  Receipt Date: 20190802
  Transmission Date: 20191004
  Serious: No
  Sender: FDA-Public Use
  Company Number: US-EXELIXIS-CABO-19020971

PATIENT
  Sex: Male
  Weight: 110.93 kg

DRUGS (1)
  1. CABOMETYX [Suspect]
     Active Substance: CABOZANTINIB S-MALATE
     Indication: RENAL CANCER
     Dosage: 60 MG, QD, MORNING ON AN EMPTY STOMACH
     Route: 048
     Dates: start: 20190427

REACTIONS (2)
  - Fatigue [Unknown]
  - Sinus disorder [Unknown]
